FAERS Safety Report 13869384 (Version 2)
Quarter: 2017Q3

REPORT INFORMATION
  Report Type: Spontaneous
  Country: JP (occurrence: JP)
  Receive Date: 20170815
  Receipt Date: 20170901
  Transmission Date: 20171127
  Serious: Yes (Other)
  Sender: FDA-Public Use
  Company Number: JP-SA-2017SA148613

PATIENT
  Age: 71 Year
  Sex: Male

DRUGS (1)
  1. JEVTANA [Suspect]
     Active Substance: CABAZITAXEL
     Route: 042
     Dates: start: 20170725, end: 20170725

REACTIONS (7)
  - Haemorrhage subcutaneous [Not Recovered/Not Resolved]
  - Insomnia [Recovering/Resolving]
  - Speech disorder [Recovering/Resolving]
  - Pain [Unknown]
  - Neutrophil count decreased [Recovered/Resolved]
  - Platelet count decreased [Unknown]
  - Sputum increased [Recovering/Resolving]

NARRATIVE: CASE EVENT DATE: 20170806
